FAERS Safety Report 8827388 (Version 1)
Quarter: 2012Q4

REPORT INFORMATION
  Report Type: 
  Country: US (occurrence: US)
  Receive Date: 20121005
  Receipt Date: 20121005
  Transmission Date: 20130627
  Serious: No
  Sender: FDA-Public Use
  Company Number: US-BRISTOL-MYERS SQUIBB COMPANY-16386500

PATIENT
  Age: 64 Year
  Sex: Female
  Weight: 60 kg

DRUGS (2)
  1. AVAPRO TABS 150 MG [Suspect]
     Indication: HYPERTENSION
     Dosage: Interrupted from 19Jan-20Jan12
Restat on 21Jan12
     Dates: start: 20111213
  2. LIPITOR [Concomitant]

REACTIONS (1)
  - Hypertension [Unknown]
